FAERS Safety Report 6742628-X (Version None)
Quarter: 2010Q2

REPORT INFORMATION
  Report Type: 
  Country: None (occurrence: None)
  Receive Date: 20100526
  Receipt Date: 20100524
  Transmission Date: 20101027
  Serious: Yes (Hospitalization)
  Sender: FDA-Public Use
  Company Number: SE-MERCK-1005SWE00019

PATIENT
  Age: 68 Year
  Sex: Female

DRUGS (7)
  1. JANUVIA [Suspect]
     Indication: TYPE 2 DIABETES MELLITUS
     Route: 048
     Dates: start: 20090315, end: 20100107
  2. TROMBYL [Concomitant]
     Route: 065
  3. CITALOPRAM [Concomitant]
     Route: 065
  4. VASERETIC [Concomitant]
     Route: 065
  5. METFORMIN [Concomitant]
     Route: 065
  6. NULYTELY [Concomitant]
     Route: 065
  7. RISPERDAL [Concomitant]
     Route: 065

REACTIONS (2)
  - DEPRESSION [None]
  - SUICIDAL IDEATION [None]
